FAERS Safety Report 25260488 (Version 1)
Quarter: 2025Q2

REPORT INFORMATION
  Report Type: Report from Study
  Country: IN (occurrence: IN)
  Receive Date: 20250501
  Receipt Date: 20250501
  Transmission Date: 20250717
  Serious: Yes (Hospitalization)
  Sender: CIPLA
  Company Number: IN-CIPLA LTD.-2025IN04981

PATIENT

DRUGS (5)
  1. BUDESONIDE [Suspect]
     Active Substance: BUDESONIDE
     Indication: Product used for unknown indication
     Route: 065
  2. IPRATROPIUM BROMIDE\LEVALBUTEROL SULFATE [Suspect]
     Active Substance: IPRATROPIUM BROMIDE\LEVALBUTEROL SULFATE
     Indication: Product used for unknown indication
     Route: 065
  3. EPLERENONE\TORSEMIDE [Suspect]
     Active Substance: EPLERENONE\TORSEMIDE
     Indication: Diuretic therapy
     Route: 048
  4. ETOFYLLINE\THEOPHYLLINE [Concomitant]
     Active Substance: ETOFYLLINE\THEOPHYLLINE
     Indication: Product used for unknown indication
     Route: 065
  5. ZAXTER [Concomitant]
     Indication: Product used for unknown indication
     Route: 065

REACTIONS (9)
  - Swelling face [Recovering/Resolving]
  - Abdominal distension [Recovering/Resolving]
  - Peripheral swelling [Recovering/Resolving]
  - Infection [Recovering/Resolving]
  - Laziness [Recovering/Resolving]
  - Glycosylated haemoglobin increased [Recovering/Resolving]
  - Blood glucose increased [Recovering/Resolving]
  - Asthenia [Recovering/Resolving]
  - Chest pain [Recovering/Resolving]

NARRATIVE: CASE EVENT DATE: 20250301
